FAERS Safety Report 4384628-3 (Version None)
Quarter: 2004Q2

REPORT INFORMATION
  Report Type: 
  Country: None (occurrence: None)
  Receive Date: 20040621
  Receipt Date: 20040609
  Transmission Date: 20050107
  Serious: Yes (Hospitalization)
  Sender: FDA-Public Use
  Company Number: 2004039086

PATIENT
  Age: 74 Year
  Sex: Male

DRUGS (9)
  1. LIPITOR [Suspect]
     Indication: HYPERCHOLESTEROLAEMIA
     Dosage: 20 MG (20 MG, 1 IN 1 D), ORAL
     Route: 048
     Dates: start: 20020511, end: 20040511
  2. GLYBURIDE [Suspect]
     Indication: DIABETES MELLITUS
     Dosage: 1.75 MG (1.75 MG, 1 IN 1 D), ORAL
     Route: 048
     Dates: start: 20040428, end: 20040511
  3. AMIODARONE HCL [Suspect]
     Indication: ATRIAL FIBRILLATION
     Dosage: 200 MG (200 MG, 1 IN 1 D), ORAL
     Route: 048
     Dates: start: 20020428, end: 20040511
  4. WARFARIN SODIUM [Concomitant]
  5. DIGITOXIN TAB [Concomitant]
  6. FUROSEMIDE [Concomitant]
  7. POTASSIUM CHLORIDE [Concomitant]
  8. LISINOPRIL [Concomitant]
  9. METOPROLOL SUCCINATE [Concomitant]

REACTIONS (3)
  - DYSPNOEA [None]
  - HEPATIC FAILURE [None]
  - RENAL FAILURE [None]
